FAERS Safety Report 6097120-5 (Version None)
Quarter: 2009Q1

REPORT INFORMATION
  Report Type: 
  Country: None (occurrence: None)
  Receive Date: 20090225
  Receipt Date: 20090211
  Transmission Date: 20090719
  Serious: Yes (Death, Other)
  Sender: FDA-Public Use
  Company Number: 2009PL000049

PATIENT
  Age: 50 Year
  Sex: Female

DRUGS (1)
  1. AZATHIOPRINE [Suspect]
     Indication: CUTANEOUS LUPUS ERYTHEMATOSUS
     Dosage: 100 MG; QD
     Dates: start: 19860101, end: 20010101

REACTIONS (11)
  - AMPUTATION [None]
  - BENIGN BREAST NEOPLASM [None]
  - BREAST CANCER FEMALE [None]
  - CARDIAC VALVE DISEASE [None]
  - CUTANEOUS LUPUS ERYTHEMATOSUS [None]
  - INTERSTITIAL LUNG DISEASE [None]
  - METASTASES TO BONE [None]
  - METASTASES TO LIVER [None]
  - METASTASES TO LUNG [None]
  - METASTASES TO LYMPH NODES [None]
  - PULMONARY FIBROSIS [None]
